FAERS Safety Report 20851249 (Version 3)
Quarter: 2022Q2

REPORT INFORMATION
  Report Type: Spontaneous
  Country: DE (occurrence: DE)
  Receive Date: 20220519
  Receipt Date: 20220623
  Transmission Date: 20220721
  Serious: Yes (Other)
  Sender: FDA-Public Use
  Company Number: DE-BAUSCH-BL-2022-012349

PATIENT
  Sex: Male

DRUGS (2)
  1. METRONIDAZOLE [Suspect]
     Active Substance: METRONIDAZOLE
     Indication: Apicectomy
     Route: 065
     Dates: start: 20210507, end: 20210514
  2. AMOXICILLIN [Suspect]
     Active Substance: AMOXICILLIN
     Indication: Apicectomy
     Dosage: 2X1000MG
     Route: 065
     Dates: start: 20210506, end: 20210506

REACTIONS (37)
  - Blood pressure increased [Recovered/Resolved]
  - Peripheral coldness [Unknown]
  - Dizziness postural [Not Recovered/Not Resolved]
  - Pain in extremity [Recovering/Resolving]
  - Oral pustule [Recovered/Resolved]
  - Apathy [Recovering/Resolving]
  - Peripheral swelling [Recovered/Resolved]
  - Muscle spasms [Recovering/Resolving]
  - Headache [Unknown]
  - Erythema [Recovered/Resolved]
  - Paraesthesia [Recovering/Resolving]
  - Asthenia [Not Recovered/Not Resolved]
  - Oedema peripheral [Recovered/Resolved]
  - Dysgeusia [Not Recovered/Not Resolved]
  - Asthenia [Not Recovered/Not Resolved]
  - Peripheral swelling [Recovered/Resolved]
  - Fatigue [Not Recovered/Not Resolved]
  - Listless [Not Recovered/Not Resolved]
  - Yawning [Not Recovered/Not Resolved]
  - Dizziness [Recovered/Resolved]
  - Heart rate increased [Recovered/Resolved]
  - Balance disorder [Recovered/Resolved]
  - Skin burning sensation [Recovered/Resolved]
  - Fatigue [Unknown]
  - Sick leave [Unknown]
  - Panic attack [Recovered/Resolved]
  - Oral mucosal erythema [Recovered/Resolved]
  - Skin exfoliation [Recovered/Resolved]
  - Restless legs syndrome [Unknown]
  - Tremor [Recovered/Resolved]
  - Hypotonia [Not Recovered/Not Resolved]
  - Mobility decreased [Recovered/Resolved]
  - Feeling cold [Unknown]
  - Depressed mood [Recovered/Resolved]
  - Oral discomfort [Not Recovered/Not Resolved]
  - Chills [Recovered/Resolved]
  - Restlessness [Recovered/Resolved]

NARRATIVE: CASE EVENT DATE: 20210101
